FAERS Safety Report 21065293 (Version 3)
Quarter: 2022Q3

REPORT INFORMATION
  Report Type: Spontaneous
  Country: US (occurrence: US)
  Receive Date: 20220711
  Receipt Date: 20220721
  Transmission Date: 20221026
  Serious: No
  Sender: FDA-Public Use
  Company Number: US-JNJFOC-20220706130

PATIENT
  Sex: Male

DRUGS (1)
  1. DITROPAN XL [Suspect]
     Active Substance: OXYBUTYNIN CHLORIDE
     Indication: Product used for unknown indication
     Route: 065

REACTIONS (6)
  - Incontinence [Unknown]
  - Product dose omission issue [Unknown]
  - Chromaturia [Unknown]
  - Dry mouth [Unknown]
  - Feeling abnormal [Unknown]
  - Dehydration [Unknown]
